FAERS Safety Report 15869547 (Version 2)
Quarter: 2019Q1

REPORT INFORMATION
  Report Type: Spontaneous
  Country: CY (occurrence: CY)
  Receive Date: 20190125
  Receipt Date: 20190208
  Transmission Date: 20190417
  Serious: Yes (Other)
  Sender: FDA-Public Use
  Company Number: CY-PFIZER INC-2019029087

PATIENT
  Age: 37 Year
  Sex: Female

DRUGS (2)
  1. SOLU-MEDROL [Suspect]
     Active Substance: METHYLPREDNISOLONE SODIUM SUCCINATE
     Indication: EYE DISORDER
     Dosage: 125 MG, EVERY TUESDAY AND FOR 6 TIMES
  2. SOLU-MEDROL [Suspect]
     Active Substance: METHYLPREDNISOLONE SODIUM SUCCINATE
     Indication: HYPOTHYROIDISM
     Dosage: 500 MG, WEEKLY (EVERY TUESDAY)
     Dates: start: 201901

REACTIONS (10)
  - Suicidal ideation [Unknown]
  - Condition aggravated [Unknown]
  - Vision blurred [Unknown]
  - Exophthalmos [Unknown]
  - Chest pain [Unknown]
  - Apnoea [Unknown]
  - Headache [Unknown]
  - Insomnia [Unknown]
  - Intraocular pressure increased [Unknown]
  - Fatigue [Unknown]

NARRATIVE: CASE EVENT DATE: 201901
